FAERS Safety Report 8284638-X (Version None)
Quarter: 2012Q2

REPORT INFORMATION
  Report Type: 
  Country: None (occurrence: None)
  Receive Date: 20120413
  Receipt Date: 20110803
  Transmission Date: 20120825
  Serious: No
  Sender: FDA-Public Use
  Company Number: US-ASTRAZENECA-2011SE46861

PATIENT
  Age: 70 Year
  Sex: Female

DRUGS (7)
  1. CALCIUM CARBONATE [Concomitant]
  2. NEXIUM [Suspect]
     Route: 048
  3. NEXIUM [Suspect]
     Indication: GASTROOESOPHAGEAL REFLUX DISEASE
     Route: 048
     Dates: start: 20010101
  4. VITAMIN D [Concomitant]
  5. RANITIDINE [Concomitant]
  6. NEXIUM [Suspect]
     Indication: ULCER
     Route: 048
     Dates: start: 20010101
  7. NEXIUM [Suspect]
     Route: 048

REACTIONS (4)
  - GASTROOESOPHAGEAL REFLUX DISEASE [None]
  - DISCOMFORT [None]
  - UNDERDOSE [None]
  - MACULAR DEGENERATION [None]
